FAERS Safety Report 9705005 (Version 2)
Quarter: 2014Q1

REPORT INFORMATION
  Report Type: Spontaneous
  Country: US (occurrence: US)
  Receive Date: 20131122
  Receipt Date: 20140228
  Transmission Date: 20141002
  Serious: No
  Sender: FDA-Public Use
  Company Number: US-ABBVIE-13P-163-1140692-00

PATIENT
  Age: 50 Year
  Sex: Male
  Weight: 85.81 kg

DRUGS (11)
  1. ANDROGEL 1.62% [Suspect]
     Indication: BLOOD TESTOSTERONE DECREASED
     Route: 061
     Dates: start: 201306, end: 20130819
  2. ANDROGEL 1.62% [Suspect]
     Route: 061
     Dates: start: 20130819
  3. TIRISINT [Concomitant]
     Indication: HYPOTHYROIDISM
  4. LUNESTA [Concomitant]
     Indication: INSOMNIA
     Dosage: AS NEEDED AT HOUR OF SLEEP
     Dates: start: 201307
  5. VITAMIN C [Concomitant]
     Indication: PRODUCT USED FOR UNKNOWN INDICATION
  6. VITAMIN D [Concomitant]
     Indication: PRODUCT USED FOR UNKNOWN INDICATION
  7. VITAMIN B [Concomitant]
     Indication: PRODUCT USED FOR UNKNOWN INDICATION
  8. SYNTHROID [Concomitant]
     Indication: THYROID DISORDER
  9. ZOLOFT [Concomitant]
     Indication: SEASONAL AFFECTIVE DISORDER
  10. MULTIPLE VITAMINS [Concomitant]
     Indication: VITAMIN SUPPLEMENTATION
  11. FISH OIL [Concomitant]
     Indication: VITAMIN SUPPLEMENTATION

REACTIONS (14)
  - Disorientation [Not Recovered/Not Resolved]
  - Muscular weakness [Not Recovered/Not Resolved]
  - Lethargy [Not Recovered/Not Resolved]
  - Drug administered at inappropriate site [Not Recovered/Not Resolved]
  - Inappropriate schedule of drug administration [Not Recovered/Not Resolved]
  - Blood testosterone decreased [Not Recovered/Not Resolved]
  - Dizziness [Not Recovered/Not Resolved]
  - Headache [Not Recovered/Not Resolved]
  - Drug ineffective [Not Recovered/Not Resolved]
  - Headache [Unknown]
  - Drug ineffective [Not Recovered/Not Resolved]
  - Drug administered at inappropriate site [Unknown]
  - Fatigue [Not Recovered/Not Resolved]
  - Lethargy [Not Recovered/Not Resolved]
